FAERS Safety Report 7634222-3 (Version None)
Quarter: 2011Q3

REPORT INFORMATION
  Report Type: 
  Country: None (occurrence: None)
  Receive Date: 20110725
  Receipt Date: 20110624
  Transmission Date: 20111222
  Serious: No
  Sender: FDA-Public Use
  Company Number: US-MYLANLABS-2011S1013351

PATIENT
  Age: 74 Year
  Sex: Male
  Weight: 70.76 kg

DRUGS (7)
  1. SPIRIVA [Concomitant]
  2. MELOXICAM [Concomitant]
  3. CLONIDINE [Suspect]
     Indication: TACHYCARDIA
     Dosage: QWEEK
     Route: 062
     Dates: start: 20110614
  4. TRAMADOL HCL [Concomitant]
  5. CENTRUM SILVER [Concomitant]
  6. DILTIAZEM [Concomitant]
     Route: 048
  7. OMEPRAZOLE [Concomitant]

REACTIONS (2)
  - DRUG INEFFECTIVE [None]
  - HEART RATE INCREASED [None]
